FAERS Safety Report 4524488-0 (Version None)
Quarter: 2004Q4

REPORT INFORMATION
  Report Type: 
  Country: None (occurrence: None)
  Receive Date: 20041117
  Receipt Date: 20031004
  Transmission Date: 20050328
  Serious: Yes (Disabling)
  Sender: FDA-Public Use
  Company Number: US-JNJFOC-20031001835

PATIENT
  Sex: Male

DRUGS (1)
  1. LEVAQUIN [Suspect]

REACTIONS (1)
  - TENDON RUPTURE [None]
